FAERS Safety Report 17941653 (Version 2)
Quarter: 2021Q1

REPORT INFORMATION
  Report Type: Spontaneous
  Country: US (occurrence: US)
  Receive Date: 20200625
  Receipt Date: 20210104
  Transmission Date: 20210419
  Serious: No
  Sender: FDA-Public Use
  Company Number: US-SA-2020SA159492

PATIENT

DRUGS (2)
  1. DUPIXENT [Suspect]
     Active Substance: DUPILUMAB
     Indication: DERMATITIS ATOPIC
     Dosage: UNK
     Route: 058
     Dates: start: 2018, end: 2018
  2. DUPIXENT [Suspect]
     Active Substance: DUPILUMAB
     Dosage: 300 MG, QOW
     Route: 058
     Dates: start: 20190925

REACTIONS (4)
  - Liver disorder [Unknown]
  - Urticaria [Unknown]
  - Pruritus [Not Recovered/Not Resolved]
  - Hepatic enzyme increased [Unknown]

NARRATIVE: CASE EVENT DATE: 202012
